FAERS Safety Report 8996957 (Version 1)
Quarter: 2013Q1

REPORT INFORMATION
  Report Type: Report from Study
  Country: ES (occurrence: ES)
  Receive Date: 20130104
  Receipt Date: 20130104
  Transmission Date: 20140127
  Serious: Yes (Death, Hospitalization)
  Sender: FDA-Public Use
  Company Number: ES-BAYER-2012-135451

PATIENT
  Age: 92 Year
  Sex: Female

DRUGS (2)
  1. ADIRO [Suspect]
     Indication: TRANSIENT ISCHAEMIC ATTACK
     Dosage: 100 MG, QD
     Route: 048
     Dates: start: 2009, end: 20091215
  2. CLEXANE [Interacting]
     Indication: IMMOBILISATION PROLONGED
     Dosage: 40 MG, QD
     Route: 058
     Dates: start: 2009, end: 20091215

REACTIONS (1)
  - Upper gastrointestinal haemorrhage [Fatal]
